FAERS Safety Report 25525902 (Version 3)
Quarter: 2025Q4

REPORT INFORMATION
  Report Type: Spontaneous
  Country: US (occurrence: US)
  Receive Date: 20250707
  Receipt Date: 20251006
  Transmission Date: 20260118
  Serious: Yes (Other)
  Sender: MERCK SHARP & DOHME LLC
  Company Number: US-009507513-2304080

PATIENT
  Age: 72 Year
  Sex: Female

DRUGS (5)
  1. DIFICID [Suspect]
     Active Substance: FIDAXOMICIN
     Indication: Clostridium difficile infection
     Dosage: 2 TABLETS, 1 MORNING AND 1 IN THE EVENING STRENGTH: 200 MG
     Route: 048
     Dates: start: 20250922
  2. DIFICID [Suspect]
     Active Substance: FIDAXOMICIN
     Indication: Clostridium difficile infection
     Dosage: 2 TABLETS, 1 MORNING AND 1 IN THE EVENING STRENGTH: 200 MG
     Route: 048
  3. DIFICID [Suspect]
     Active Substance: FIDAXOMICIN
     Indication: Clostridium difficile infection
  4. PRAVASTATIN [Concomitant]
     Active Substance: PRAVASTATIN
     Dosage: STRENGTH: 20 MG
  5. FAMOTIDINE [Concomitant]
     Active Substance: FAMOTIDINE

REACTIONS (2)
  - Clostridium difficile infection [Unknown]
  - Product packaging quantity issue [Unknown]

NARRATIVE: CASE EVENT DATE: 20250924
